FAERS Safety Report 16625784 (Version 2)
Quarter: 2019Q4

REPORT INFORMATION
  Report Type: Report from Study
  Country: GR (occurrence: GR)
  Receive Date: 20190724
  Receipt Date: 20191001
  Transmission Date: 20200122
  Serious: Yes (Other)
  Sender: FDA-Public Use
  Company Number: GR-CELGENEUS-GRC-20180203087

PATIENT
  Age: 67 Year
  Sex: Male
  Weight: 91.2 kg

DRUGS (6)
  1. CLODELIB [Concomitant]
     Indication: CORONARY ARTERY DISEASE
     Dosage: 150 MILLIGRAM
     Route: 065
     Dates: start: 20171001
  2. OTEZLA [Suspect]
     Active Substance: APREMILAST
     Indication: PSORIASIS
     Dosage: 60 MILLIGRAM
     Route: 048
     Dates: start: 20171027
  3. JARDIANCE [Concomitant]
     Active Substance: EMPAGLIFLOZIN
     Indication: TYPE 2 DIABETES MELLITUS
     Dosage: 10 MILLIGRAM
     Route: 065
     Dates: start: 2015
  4. INEGY [Concomitant]
     Active Substance: EZETIMIBE\SIMVASTATIN
     Indication: HYPERLIPIDAEMIA
     Dosage: 10-20 MILLIGRAM
     Route: 065
     Dates: start: 2003
  5. INSULIN TRESIBA [Concomitant]
     Indication: TYPE 2 DIABETES MELLITUS
     Dosage: 50 IU (INTERNATIONAL UNIT)
     Route: 065
     Dates: start: 2015
  6. HUMALOG [Concomitant]
     Active Substance: INSULIN LISPRO
     Indication: TYPE 2 DIABETES MELLITUS
     Dosage: 54 IU (INTERNATIONAL UNIT)
     Route: 065
     Dates: start: 2015

REACTIONS (2)
  - Sinusitis [Recovered/Resolved]
  - Frequent bowel movements [Not Recovered/Not Resolved]

NARRATIVE: CASE EVENT DATE: 20171205
